FAERS Safety Report 18189706 (Version 1)
Quarter: 2020Q3

REPORT INFORMATION
  Report Type: Spontaneous
  Country: CN (occurrence: CN)
  Receive Date: 20200825
  Receipt Date: 20200825
  Transmission Date: 20201103
  Serious: Yes (Other)
  Sender: FDA-Public Use
  Company Number: CN-SUN PHARMACEUTICAL INDUSTRIES LTD-2020R1-257371

PATIENT
  Age: 73 Year
  Sex: Male

DRUGS (2)
  1. PACLITAXEL. [Suspect]
     Active Substance: PACLITAXEL
     Indication: CHEMOTHERAPY
     Dosage: 220 MG, UNK
     Route: 065
  2. CARBOPLATIN. [Suspect]
     Active Substance: CARBOPLATIN
     Indication: CHEMOTHERAPY
     Dosage: 380 MG D1 Q21D
     Route: 065

REACTIONS (5)
  - Leukopenia [Unknown]
  - Disease progression [Unknown]
  - Drug intolerance [Unknown]
  - Nausea [Unknown]
  - Vomiting [Unknown]
